FAERS Safety Report 6519438-1 (Version None)
Quarter: 2009Q4

REPORT INFORMATION
  Report Type: 
  Country: None (occurrence: None)
  Receive Date: 20091228
  Receipt Date: 20091214
  Transmission Date: 20100525
  Serious: Yes (Other)
  Sender: FDA-Public Use
  Company Number: CL-PFIZER INC-2009312645

PATIENT
  Age: 28 Year
  Sex: Male

DRUGS (1)
  1. XALATAN [Suspect]
     Dosage: ONE DROP AT NIGHT
     Dates: start: 20091207

REACTIONS (3)
  - DIZZINESS [None]
  - HEADACHE [None]
  - INTRAOCULAR PRESSURE INCREASED [None]
